FAERS Safety Report 7332937-8 (Version None)
Quarter: 2011Q1

REPORT INFORMATION
  Report Type: 
  Country: None (occurrence: None)
  Receive Date: 20110304
  Receipt Date: 20110222
  Transmission Date: 20110831
  Serious: Yes (Hospitalization, Other)
  Sender: FDA-Public Use
  Company Number: US-PURDUE-USA-2010-0056110

PATIENT
  Sex: Male

DRUGS (2)
  1. OXYCONTIN [Suspect]
     Indication: PRODUCT USED FOR UNKNOWN INDICATION
     Dosage: 80 MG, UNK
     Dates: start: 20100901
  2. DILAUDID [Concomitant]
     Indication: PRODUCT USED FOR UNKNOWN INDICATION

REACTIONS (7)
  - CLOSTRIDIAL INFECTION [None]
  - GASTRIC DISORDER [None]
  - BRONCHITIS [None]
  - ABDOMINAL DISCOMFORT [None]
  - MALAISE [None]
  - PNEUMONIA [None]
  - NOSOCOMIAL INFECTION [None]
